FAERS Safety Report 4592688-X (Version None)
Quarter: 2005Q1

REPORT INFORMATION
  Report Type: 
  Country: None (occurrence: None)
  Receive Date: 20050222
  Receipt Date: 20050201
  Transmission Date: 20050727
  Serious: No
  Sender: FDA-Public Use
  Company Number: 2004SE03422

PATIENT
  Age: 49 Year
  Sex: Female
  Weight: 82 kg

DRUGS (4)
  1. NEXIUM [Suspect]
     Indication: GASTROOESOPHAGEAL REFLUX DISEASE
     Dosage: 40 MG PO
     Route: 048
     Dates: start: 20040405, end: 20040516
  2. ANFRANIL [Concomitant]
  3. ESTRADIOL [Concomitant]
  4. LORMETAZEPAMUM [Concomitant]
     Indication: GASTROOESOPHAGEAL REFLUX DISEASE

REACTIONS (2)
  - AGGRESSION [None]
  - AGITATION [None]
